FAERS Safety Report 12764070 (Version 3)
Quarter: 2018Q1

REPORT INFORMATION
  Report Type: Spontaneous
  Country: JP (occurrence: JP)
  Receive Date: 20160920
  Receipt Date: 20180306
  Transmission Date: 20180508
  Serious: Yes (Other)
  Sender: FDA-Public Use
  Company Number: JP-OTSUKA-2016_022108

PATIENT
  Age: 67 Year
  Sex: Male

DRUGS (5)
  1. CILOSTAZOL. [Suspect]
     Active Substance: CILOSTAZOL
     Dosage: 100 MG, UNK
     Route: 065
  2. DONEPEZIL HYDROCHLORIDE. [Concomitant]
     Active Substance: DONEPEZIL HYDROCHLORIDE
     Dosage: 10 MG, UNK
     Route: 065
  3. DONEPEZIL HYDROCHLORIDE. [Concomitant]
     Active Substance: DONEPEZIL HYDROCHLORIDE
     Dosage: 5 MG, UNK
     Route: 065
  4. DONEPEZIL HYDROCHLORIDE. [Concomitant]
     Active Substance: DONEPEZIL HYDROCHLORIDE
     Indication: DEMENTIA ALZHEIMER^S TYPE
     Dosage: 5 MG, UNK
     Route: 065
  5. CILOSTAZOL. [Suspect]
     Active Substance: CILOSTAZOL
     Indication: DEMENTIA ALZHEIMER^S TYPE
     Dosage: 200 MG, UNK
     Route: 048

REACTIONS (4)
  - Altered state of consciousness [Recovering/Resolving]
  - Off label use [Unknown]
  - Vomiting [Unknown]
  - Acute kidney injury [Recovered/Resolved]
